FAERS Safety Report 16377078 (Version 1)
Quarter: 2019Q2

REPORT INFORMATION
  Report Type: Report from Study
  Country: US (occurrence: US)
  Receive Date: 20190531
  Receipt Date: 20190531
  Transmission Date: 20190711
  Serious: Yes (Other)
  Sender: FDA-Public Use
  Company Number: PHEH2019US022459

PATIENT
  Sex: Male

DRUGS (2)
  1. LASIX [Suspect]
     Active Substance: FUROSEMIDE
     Indication: PRODUCT USED FOR UNKNOWN INDICATION
     Route: 065
  2. ENTRESTO [Suspect]
     Active Substance: SACUBITRIL\VALSARTAN
     Indication: PRODUCT USED FOR UNKNOWN INDICATION
     Route: 048

REACTIONS (20)
  - Pollakiuria [Unknown]
  - Muscle tightness [Unknown]
  - Blood pressure abnormal [Unknown]
  - Cardiac disorder [Unknown]
  - Fatigue [Unknown]
  - Nightmare [Unknown]
  - Cardiac failure congestive [Unknown]
  - Dyspnoea [Unknown]
  - Gout [Unknown]
  - Arthralgia [Unknown]
  - Chronic obstructive pulmonary disease [Unknown]
  - Post-traumatic stress disorder [Unknown]
  - Pain in extremity [Unknown]
  - Gait disturbance [Unknown]
  - Blood glucose increased [Unknown]
  - Blood potassium decreased [Unknown]
  - Abdominal distension [Unknown]
  - Pain [Unknown]
  - Peripheral swelling [Unknown]
  - Feeling abnormal [Unknown]
